FAERS Safety Report 8837737 (Version 1)
Quarter: 2012Q4

REPORT INFORMATION
  Report Type: 
  Country: US (occurrence: US)
  Receive Date: 20121012
  Receipt Date: 20121012
  Transmission Date: 20130627
  Serious: Yes (Hospitalization)
  Sender: FDA-Public Use
  Company Number: US-BAYER-2012-103703

PATIENT
  Age: 16 Year
  Sex: Female

DRUGS (4)
  1. BEYAZ [Suspect]
  2. CITALOPRAM [Concomitant]
  3. ABILIFY [Concomitant]
  4. ZYRTEC [Concomitant]

REACTIONS (2)
  - Deep vein thrombosis [Recovering/Resolving]
  - Pelvic venous thrombosis [Recovering/Resolving]
